FAERS Safety Report 20258377 (Version 1)
Quarter: 2021Q4

REPORT INFORMATION
  Report Type: Spontaneous
  Country: None (occurrence: MY)
  Receive Date: 20211230
  Receipt Date: 20211230
  Transmission Date: 20220303
  Serious: Yes (Other)
  Sender: FDA-Public Use
  Company Number: MY-Canton Laboratories, LLC-2123507

PATIENT
  Age: 28 Year
  Sex: Male

DRUGS (1)
  1. NAPROSYN [Suspect]
     Active Substance: NAPROXEN
     Indication: Headache
     Route: 048

REACTIONS (5)
  - Rash [Recovering/Resolving]
  - Periorbital swelling [Recovering/Resolving]
  - Swelling face [Recovering/Resolving]
  - Conjunctival oedema [Recovering/Resolving]
  - Nasal congestion [Recovering/Resolving]
